FAERS Safety Report 7565232-2 (Version None)
Quarter: 2011Q2

REPORT INFORMATION
  Report Type: 
  Country: None (occurrence: None)
  Receive Date: 20110622
  Receipt Date: 20110609
  Transmission Date: 20111010
  Serious: Yes (Other)
  Sender: FDA-Public Use
  Company Number: US-CELGENEUS-163-21880-11031867

PATIENT
  Sex: Female
  Weight: 93 kg

DRUGS (1)
  1. REVLIMID [Suspect]
     Dosage: 5 MILLIGRAM
     Route: 048
     Dates: start: 20091023

REACTIONS (5)
  - RASH [None]
  - VAGINAL MUCOSAL BLISTERING [None]
  - DIARRHOEA [None]
  - SKIN EXFOLIATION [None]
  - DRY SKIN [None]
